FAERS Safety Report 8053950-1 (Version None)
Quarter: 2012Q1

REPORT INFORMATION
  Report Type: 
  Country: None (occurrence: None)
  Receive Date: 20120118
  Receipt Date: 20120112
  Transmission Date: 20120608
  Serious: Yes (Other)
  Sender: FDA-Public Use
  Company Number: US-PFIZER INC-2012010638

PATIENT
  Sex: Female
  Weight: 72.562 kg

DRUGS (7)
  1. ETHINYL ESTRADIOL AND NORETHINDRONE [Concomitant]
     Indication: CONTRACEPTION
     Dosage: UNK, DAILY
     Route: 048
  2. EFFEXOR XR [Suspect]
     Indication: DEPRESSION
     Dosage: 300 MG, DAILY
     Route: 048
  3. EFFEXOR XR [Suspect]
     Indication: ANXIETY
  4. VENLAFAXINE HCL [Suspect]
     Indication: DEPRESSION
     Dosage: UNK
     Dates: start: 20060101
  5. VENLAFAXINE HCL [Suspect]
     Indication: ANXIETY
  6. VITAMIN D [Concomitant]
     Dosage: 2000 IU, DAILY
  7. ALBUTEROL SULFATE [Concomitant]
     Indication: BRONCHIAL HYPERREACTIVITY
     Dosage: 90 UG, THREE TIMES A DAY WHEN REQUIRED

REACTIONS (6)
  - TREMOR [None]
  - SUICIDAL IDEATION [None]
  - NAUSEA [None]
  - HEADACHE [None]
  - REGRESSIVE BEHAVIOUR [None]
  - ANXIETY [None]
